FAERS Safety Report 9487386 (Version 2)
Quarter: 2013Q3

REPORT INFORMATION
  Report Type: Report from Study
  Country: US (occurrence: US)
  Receive Date: 20130829
  Receipt Date: 20130904
  Transmission Date: 20140515
  Serious: Yes (Hospitalization, Other)
  Sender: FDA-Public Use
  Company Number: US-ABBOTT-13P-163-1137739-00

PATIENT
  Sex: Male
  Weight: 108.05 kg

DRUGS (3)
  1. HUMIRA [Suspect]
     Indication: RHEUMATOID ARTHRITIS
     Dates: end: 201307
  2. LEFLUNOMIDE [Concomitant]
     Indication: RHEUMATOID ARTHRITIS
  3. VITAMIN D NOS [Concomitant]
     Indication: VITAMIN SUPPLEMENTATION

REACTIONS (9)
  - Abdominal distension [Recovered/Resolved]
  - Rheumatoid arthritis [Recovered/Resolved]
  - Cholelithiasis [Recovered/Resolved]
  - Cholecystitis [Recovered/Resolved]
  - Cholecystitis infective [Recovered/Resolved]
  - Rheumatoid arthritis [Not Recovered/Not Resolved]
  - Tremor [Recovered/Resolved]
  - Arthralgia [Not Recovered/Not Resolved]
  - Abdominal pain [Recovered/Resolved]
